FAERS Safety Report 23034721 (Version 2)
Quarter: 2023Q4

REPORT INFORMATION
  Report Type: Report from Study
  Country: US (occurrence: US)
  Receive Date: 20231005
  Receipt Date: 20231107
  Transmission Date: 20240110
  Serious: Yes (Other)
  Sender: FDA-Public Use
  Company Number: US-ARGENX-2023-ARGX-US003013

PATIENT

DRUGS (2)
  1. VYVGART [Suspect]
     Active Substance: EFGARTIGIMOD ALFA-FCAB
     Indication: Myasthenia gravis
     Dosage: 10 MG/KG
     Route: 042
     Dates: start: 2023
  2. VYVGART [Suspect]
     Active Substance: EFGARTIGIMOD ALFA-FCAB
     Dosage: 10 MG/KG
     Route: 042
     Dates: start: 20230822

REACTIONS (9)
  - Choking [Unknown]
  - Pulmonary congestion [Unknown]
  - Drug ineffective [Unknown]
  - Adverse reaction [Unknown]
  - Lethargy [Unknown]
  - Cough [Unknown]
  - Tremor [Unknown]
  - Dizziness [Unknown]
  - Dyspnoea [Unknown]
